FAERS Safety Report 16140349 (Version 6)
Quarter: 2020Q4

REPORT INFORMATION
  Report Type: Report from Study
  Country: US (occurrence: US)
  Receive Date: 20190401
  Receipt Date: 20201101
  Transmission Date: 20210113
  Serious: Yes (Death, Life-Threatening, Hospitalization, Other)
  Sender: FDA-Public Use
  Company Number: PHEH2019US013769

PATIENT
  Sex: Male

DRUGS (3)
  1. CYCLOPHOSPHAMIDE. [Concomitant]
     Active Substance: CYCLOPHOSPHAMIDE
     Indication: CHEMOTHERAPY
     Route: 065
  2. KYMRIAH [Suspect]
     Active Substance: TISAGENLECLEUCEL
     Indication: NON-HODGKIN^S LYMPHOMA
     Dosage: UNK, ONCE/SINGLE
     Route: 041
     Dates: start: 20190128
  3. FLUDARABINE [Concomitant]
     Active Substance: FLUDARABINE PHOSPHATE
     Indication: CHEMOTHERAPY
     Route: 065

REACTIONS (12)
  - Enterococcal infection [Unknown]
  - Lymphocyte count decreased [Not Recovered/Not Resolved]
  - White blood cell count increased [Unknown]
  - Haemoglobin decreased [Not Recovered/Not Resolved]
  - Cholecystitis acute [Recovering/Resolving]
  - Candida infection [Unknown]
  - Non-Hodgkin^s lymphoma [Fatal]
  - Therapy non-responder [Unknown]
  - Malignant neoplasm progression [Fatal]
  - Neutrophil count increased [Unknown]
  - Platelet count increased [Unknown]
  - Haematocrit decreased [Not Recovered/Not Resolved]
